FAERS Safety Report 23495010 (Version 1)
Quarter: 2024Q1

REPORT INFORMATION
  Report Type: Spontaneous
  Country: US (occurrence: None)
  Receive Date: 20240207
  Receipt Date: 20240207
  Transmission Date: 20240410
  Serious: Yes (Other)
  Sender: FDA-Public Use
  Company Number: 2024A024557

PATIENT
  Age: 28388 Day
  Sex: Female

DRUGS (2)
  1. FASLODEX [Suspect]
     Active Substance: FULVESTRANT
     Route: 030
     Dates: start: 20211001
  2. KISQALI [Suspect]
     Active Substance: RIBOCICLIB
     Route: 048

REACTIONS (19)
  - Malignant neoplasm progression [Unknown]
  - Spinal cord injury cervical [Unknown]
  - Myelitis transverse [Unknown]
  - White blood cell count decreased [Unknown]
  - Haemorrhage [Unknown]
  - Product use issue [Unknown]
  - COVID-19 [Unknown]
  - Contusion [Unknown]
  - Irritable bowel syndrome [Unknown]
  - Nerve injury [Unknown]
  - Pain [Unknown]
  - Inflammation [Unknown]
  - Generalised oedema [Unknown]
  - Myalgia [Unknown]
  - Arthralgia [Unknown]
  - Dermatitis [Unknown]
  - Hypersensitivity [Unknown]
  - Rash pruritic [Unknown]
  - Ill-defined disorder [Unknown]

NARRATIVE: CASE EVENT DATE: 20211001
